FAERS Safety Report 5814552-8 (Version None)
Quarter: 2008Q3

REPORT INFORMATION
  Report Type: 
  Country: None (occurrence: None)
  Receive Date: 20080718
  Receipt Date: 20070830
  Transmission Date: 20090109
  Serious: No
  Sender: FDA-Public Use
  Company Number: US-KINGPHARMUSA00001-K200701126

PATIENT

DRUGS (2)
  1. LEVOXYL [Suspect]
     Indication: THYROID DISORDER
     Dosage: ^.5 MCG^, QD
     Route: 048
     Dates: start: 19950101
  2. YASMIN [Concomitant]
     Indication: CONTRACEPTION
     Dosage: UNK, QD
     Route: 048

REACTIONS (1)
  - THYROID FUNCTION TEST ABNORMAL [None]
